FAERS Safety Report 8795906 (Version 1)
Quarter: 2012Q4

REPORT INFORMATION
  Report Type: 
  Country: US (occurrence: US)
  Receive Date: 20120920
  Receipt Date: 20120920
  Transmission Date: 20130627
  Serious: Yes (Hospitalization)
  Sender: FDA-Public Use
  Company Number: US-CELGENEUS-163-21880-12091550

PATIENT
  Age: 48 Year
  Sex: Female
  Weight: 79.45 kg

DRUGS (1)
  1. REVLIMID [Suspect]
     Indication: MULTIPLE MYELOMA
     Dosage: 15 Milligram
     Route: 048
     Dates: start: 20110705

REACTIONS (2)
  - Spinal disorder [Not Recovered/Not Resolved]
  - Thrombosis [Not Recovered/Not Resolved]
